FAERS Safety Report 6174106-3 (Version None)
Quarter: 2009Q2

REPORT INFORMATION
  Report Type: 
  Country: None (occurrence: None)
  Receive Date: 20090430
  Receipt Date: 20090422
  Transmission Date: 20091009
  Serious: Yes (Other)
  Sender: FDA-Public Use
  Company Number: PHNU2005DE03019

PATIENT
  Sex: Male

DRUGS (3)
  1. LAMISIL [Suspect]
     Indication: ONYCHOMYCOSIS
     Dosage: 250 MG, QD
     Route: 048
     Dates: start: 20050730, end: 20050806
  2. BELOC-ZOK [Suspect]
  3. SORTIS [Concomitant]
     Indication: HYPERLIPIDAEMIA

REACTIONS (4)
  - DEPRESSION [None]
  - DRUG INTERACTION [None]
  - NIGHT SWEATS [None]
  - RESTLESSNESS [None]
